FAERS Safety Report 17899750 (Version 1)
Quarter: 2020Q2

REPORT INFORMATION
  Report Type: Spontaneous
  Country: US (occurrence: US)
  Receive Date: 20200615
  Receipt Date: 20200615
  Transmission Date: 20200714
  Serious: Yes (Death)
  Sender: FDA-Public Use
  Company Number: None

PATIENT
  Age: 56 Year
  Sex: Female

DRUGS (13)
  1. LORAZEPAM. [Concomitant]
     Active Substance: LORAZEPAM
  2. GABAPENTIN. [Concomitant]
     Active Substance: GABAPENTIN
  3. OMEPRAZOLE. [Concomitant]
     Active Substance: OMEPRAZOLE
  4. OXYCODONE [Concomitant]
     Active Substance: OXYCODONE
  5. FUROSEMIDE. [Concomitant]
     Active Substance: FUROSEMIDE
  6. PIQRAY [Suspect]
     Active Substance: ALPELISIB
     Indication: BREAST CANCER FEMALE
     Route: 048
     Dates: start: 20190801, end: 20200408
  7. MORPHINE [Concomitant]
     Active Substance: MORPHINE
  8. CELEBREX [Concomitant]
     Active Substance: CELECOXIB
  9. FENTANYL. [Concomitant]
     Active Substance: FENTANYL
  10. HYOSCYAMINE. [Concomitant]
     Active Substance: HYOSCYAMINE
  11. CITALOPRAM [Concomitant]
     Active Substance: CITALOPRAM HYDROBROMIDE
  12. PREVIDENT [Concomitant]
     Active Substance: SODIUM FLUORIDE
  13. SPIRONOACTONE [Concomitant]

REACTIONS (1)
  - Death [None]

NARRATIVE: CASE EVENT DATE: 20200615
